FAERS Safety Report 9450206 (Version 1)
Quarter: 2013Q3

REPORT INFORMATION
  Report Type: Spontaneous
  Country: FR (occurrence: FR)
  Receive Date: 20130809
  Receipt Date: 20130809
  Transmission Date: 20140515
  Serious: Yes (Death, Hospitalization)
  Sender: FDA-Public Use
  Company Number: FR-SANOFI-AVENTIS-2013SA078055

PATIENT
  Age: 71 Year
  Sex: Male

DRUGS (13)
  1. LOVENOX [Suspect]
     Indication: PRODUCT USED FOR UNKNOWN INDICATION
     Route: 058
     Dates: start: 20130704, end: 20130710
  2. EUPANTOL [Concomitant]
     Dates: start: 20130702, end: 20130715
  3. SKENAN [Concomitant]
     Dates: start: 20130703
  4. ACTISKENAN [Concomitant]
     Dates: start: 20130703
  5. KARDEGIC [Concomitant]
  6. DEDROGYL [Concomitant]
  7. DOLIPRANE [Concomitant]
  8. POVIDONE [Concomitant]
  9. GANFORT [Concomitant]
  10. LAROXYL [Concomitant]
  11. NOVONORM [Concomitant]
  12. RIVOTRIL [Concomitant]
  13. XELEVIA [Concomitant]

REACTIONS (1)
  - Heparin-induced thrombocytopenia [Fatal]
